FAERS Safety Report 23332829 (Version 1)
Quarter: 2023Q4

REPORT INFORMATION
  Report Type: Spontaneous
  Country: US (occurrence: US)
  Receive Date: 20231222
  Receipt Date: 20231222
  Transmission Date: 20240110
  Serious: No
  Sender: FDA-Public Use
  Company Number: US-CTI BIOPHARMA-2023US04098

PATIENT

DRUGS (9)
  1. VONJO [Suspect]
     Active Substance: PACRITINIB
     Indication: Anaemia
     Dosage: 100 MG, BID
     Route: 048
     Dates: start: 20230808
  2. ATIVAN [Concomitant]
     Active Substance: LORAZEPAM
  3. IBUPROFEN [Concomitant]
     Active Substance: IBUPROFEN
  4. FIORICET [Concomitant]
     Active Substance: ACETAMINOPHEN\BUTALBITAL\CAFFEINE
  5. HYDROXYUREA [Concomitant]
     Active Substance: HYDROXYUREA
  6. LOPERAMIDE HYDROCHLORIDE [Concomitant]
     Active Substance: LOPERAMIDE HYDROCHLORIDE
  7. NORCO [Concomitant]
     Active Substance: ACETAMINOPHEN\HYDROCODONE BITARTRATE
  8. PROCHLORPERAZINE [Concomitant]
     Active Substance: PROCHLORPERAZINE
  9. VITAMIN D3 [Concomitant]
     Active Substance: CHOLECALCIFEROL

REACTIONS (2)
  - Sinusitis [Unknown]
  - Off label use [Unknown]
